FAERS Safety Report 8473836-8 (Version None)
Quarter: 2012Q2

REPORT INFORMATION
  Report Type: 
  Country: None (occurrence: None)
  Receive Date: 20120628
  Receipt Date: 20120112
  Transmission Date: 20120825
  Serious: Yes (Death)
  Sender: FDA-Public Use
  Company Number: US-MYLANLABS-2011S1025874

PATIENT
  Age: 50 Year
  Sex: Male
  Weight: 245.4 kg

DRUGS (2)
  1. CLOZAPINE [Suspect]
     Route: 048
     Dates: end: 20111201
  2. OXYGEN [Concomitant]
     Dosage: PATIENT WAS ON OXYGEN 24/7

REACTIONS (1)
  - MYOCARDIAL INFARCTION [None]
